FAERS Safety Report 7902721-2 (Version None)
Quarter: 2011Q4

REPORT INFORMATION
  Report Type: 
  Country: None (occurrence: None)
  Receive Date: 20111109
  Receipt Date: 20111027
  Transmission Date: 20120403
  Serious: Yes (Hospitalization)
  Sender: FDA-Public Use
  Company Number: DK-BRISTOL-MYERS SQUIBB COMPANY-16210965

PATIENT
  Age: 45 Year
  Sex: Female

DRUGS (4)
  1. EFAVIRENZ [Suspect]
     Indication: HIV INFECTION
     Route: 048
     Dates: start: 20100816
  2. KIVEXA [Interacting]
     Indication: HIV INFECTION
     Route: 048
     Dates: start: 20100816
  3. SENNA [Interacting]
     Indication: PHYTOTHERAPY
     Route: 048
     Dates: start: 20101011, end: 20101111
  4. ORLISTAT [Interacting]
     Indication: WEIGHT DECREASED
     Dosage: FORMU: CAPS
     Route: 048
     Dates: start: 20101011, end: 20101111

REACTIONS (9)
  - CHROMATURIA [None]
  - DIZZINESS [None]
  - ANAEMIA HAEMOLYTIC AUTOIMMUNE [None]
  - BLOOD URINE PRESENT [None]
  - URINE ABNORMALITY [None]
  - HEADACHE [None]
  - DRUG INTERACTION [None]
  - NAUSEA [None]
  - VOMITING [None]
